FAERS Safety Report 4811287-5 (Version None)
Quarter: 2005Q4

REPORT INFORMATION
  Report Type: 
  Country: None (occurrence: None)
  Receive Date: 20051027
  Receipt Date: 20051024
  Transmission Date: 20060501
  Serious: Yes (Hospitalization)
  Sender: FDA-Public Use
  Company Number: US-MERCK-0510USA08882

PATIENT
  Age: 78 Year
  Sex: Female
  Weight: 61 kg

DRUGS (9)
  1. VIOXX [Suspect]
     Indication: ARTHRITIS
     Route: 048
     Dates: start: 20000925, end: 20001025
  2. VASOTEC [Concomitant]
     Indication: HYPERTENSION
     Route: 065
     Dates: start: 19850101
  3. SINEMET [Concomitant]
     Indication: PARKINSON'S DISEASE
     Route: 065
  4. ELDEPRYL [Concomitant]
     Indication: PARKINSON'S DISEASE
     Route: 065
  5. FOSAMAX [Concomitant]
     Indication: OSTEOPOROSIS
     Route: 065
  6. THEO-DUR [Concomitant]
     Indication: ASTHMA
     Route: 065
     Dates: start: 19850101, end: 20040101
  7. OS-CAL [Concomitant]
     Indication: OSTEOPOROSIS
     Route: 065
  8. TYLENOL (CAPLET) [Concomitant]
     Route: 065
  9. ASPIRIN [Concomitant]
     Route: 065

REACTIONS (4)
  - ANXIETY [None]
  - CEREBROVASCULAR ACCIDENT [None]
  - EMOTIONAL DISTRESS [None]
  - FALL [None]
